FAERS Safety Report 9015790 (Version 2)
Quarter: 2013Q1

REPORT INFORMATION
  Report Type: Spontaneous
  Country: US (occurrence: None)
  Receive Date: 20130102
  Receipt Date: 20130208
  Transmission Date: 20140127
  Serious: Yes (Hospitalization)
  Sender: FDA-Public Use
  Company Number: 2012-609

PATIENT
  Age: 51 Year
  Sex: Female

DRUGS (3)
  1. PRIALT (ZICONOTIDE) INTRATHECAL INFUSION [Suspect]
     Indication: PAIN
     Dosage: UNK MCG , ONCE/HOUR
     Route: 037
     Dates: start: 20111025, end: 20111207
  2. FENTANYL (FENTANYL) [Suspect]
     Indication: PAIN
     Dosage: ONCE/HOUR
     Route: 037
     Dates: start: 20121009, end: 20121101
  3. FENTANYL (FENTANYL) [Suspect]
     Route: 061
     Dates: end: 20121029

REACTIONS (6)
  - Oral discomfort [None]
  - Formication [None]
  - Cerebral haemorrhage [None]
  - Central nervous system lesion [None]
  - Hallucination [None]
  - Dysgeusia [None]
